FAERS Safety Report 15440275 (Version 1)
Quarter: 2018Q3

REPORT INFORMATION
  Report Type: Spontaneous
  Country: CH (occurrence: CH)
  Receive Date: 20180928
  Receipt Date: 20180928
  Transmission Date: 20181010
  Serious: Yes (Other)
  Sender: FDA-Public Use
  Company Number: CH-ASTRAZENECA-2018SF24101

PATIENT
  Age: 417 Month
  Sex: Female
  Weight: 70 kg

DRUGS (2)
  1. FASENRA [Suspect]
     Active Substance: BENRALIZUMAB
     Indication: ASTHMA
     Dosage: 30.0MG UNKNOWN
     Route: 058
     Dates: start: 20180827, end: 20180827
  2. SYMBICORT [Concomitant]
     Active Substance: BUDESONIDE\FORMOTEROL FUMARATE DIHYDRATE
     Indication: ASTHMA
     Dosage: 12 MCG: 400 MCG

REACTIONS (5)
  - Injection site pain [Recovered/Resolved]
  - Malaise [Recovered/Resolved]
  - Paraesthesia oral [Recovered/Resolved]
  - Fatigue [Recovering/Resolving]
  - Injection site swelling [Recovered/Resolved]

NARRATIVE: CASE EVENT DATE: 201808
